FAERS Safety Report 7717984-6 (Version None)
Quarter: 2011Q3

REPORT INFORMATION
  Report Type: 
  Country: None (occurrence: None)
  Receive Date: 20110830
  Receipt Date: 20110616
  Transmission Date: 20111222
  Serious: No
  Sender: FDA-Public Use
  Company Number: US-AMGEN-USASP2011027084

PATIENT
  Age: 83 Year
  Sex: Female
  Weight: 81.6 kg

DRUGS (4)
  1. NPLATE [Suspect]
     Indication: IDIOPATHIC THROMBOCYTOPENIC PURPURA
     Dosage: 4 A?G/KG, QWK
     Route: 058
     Dates: start: 20100423
  2. ALLOPURINOL [Concomitant]
     Dosage: UNK
     Dates: start: 20100801
  3. INDOMETHACIN [Concomitant]
  4. COUMADIN [Concomitant]

REACTIONS (2)
  - PLATELET COUNT INCREASED [None]
  - GOUT [None]
